FAERS Safety Report 20729967 (Version 1)
Quarter: 2022Q2

REPORT INFORMATION
  Report Type: Spontaneous
  Country: CA (occurrence: CA)
  Receive Date: 20220420
  Receipt Date: 20220420
  Transmission Date: 20220720
  Serious: Yes (Hospitalization)
  Sender: FDA-Public Use
  Company Number: None

PATIENT
  Age: 3 Year
  Sex: Male
  Weight: 15 kg

DRUGS (45)
  1. CARBOPLATIN [Suspect]
     Active Substance: CARBOPLATIN
     Indication: Transplant
     Dosage: SOLUTION INTRAVENOUS
     Route: 042
  2. THIOTEPA [Suspect]
     Active Substance: THIOTEPA
     Indication: Transplant
     Route: 042
  3. ACYCLOVIR [Concomitant]
     Active Substance: ACYCLOVIR
  4. AMLODIPINE [Concomitant]
     Active Substance: AMLODIPINE BESYLATE
  5. AMOXICILLIN [Concomitant]
     Active Substance: AMOXICILLIN
  6. ATROPINE [Concomitant]
     Active Substance: ATROPINE
  7. CALCIUM+VIT D [Concomitant]
  8. CARDENE [Concomitant]
     Active Substance: NICARDIPINE HYDROCHLORIDE
  9. CEFTAZIDIME PENTAHYDRATE [Concomitant]
     Active Substance: CEFTAZIDIME
  10. CETIRIZINE [Concomitant]
     Active Substance: CETIRIZINE HYDROCHLORIDE
  11. CHOLECALCIFEROL [Concomitant]
     Active Substance: CHOLECALCIFEROL
  12. CLONIDINE [Concomitant]
     Active Substance: CLONIDINE
  13. DEXMEDETOMIDINE HYDROCHLORIDE [Concomitant]
     Active Substance: DEXMEDETOMIDINE HYDROCHLORIDE
  14. DIMENHYDRINATE [Concomitant]
     Active Substance: DIMENHYDRINATE
     Dosage: LIQUID INTRAVENOUS
  15. DIPHENHYDRAMINE [Concomitant]
     Active Substance: DIPHENHYDRAMINE
  16. DOBUTAMINE [Concomitant]
     Active Substance: DOBUTAMINE HYDROCHLORIDE
     Dosage: LIQUID INTRAVENOUS
  17. ENOXAPARIN [Concomitant]
     Active Substance: ENOXAPARIN
  18. FAMOTIDINE [Concomitant]
     Active Substance: FAMOTIDINE
  19. FILGRASTIM [Concomitant]
     Active Substance: FILGRASTIM
  20. FLUCONAZOLE [Concomitant]
     Active Substance: FLUCONAZOLE
  21. FUROSEMIDE [Concomitant]
     Active Substance: FUROSEMIDE
  22. HYDROCORTISONE [Concomitant]
     Active Substance: HYDROCORTISONE
     Route: 030
  23. HYDROMORPHONE HYDROCHLORIDE [Concomitant]
     Active Substance: HYDROMORPHONE HYDROCHLORIDE
  24. KETAMINE [Concomitant]
     Active Substance: KETAMINE
  25. LANSOPRAZOLE [Concomitant]
     Active Substance: LANSOPRAZOLE
  26. LEVETIRACETAM [Concomitant]
     Active Substance: LEVETIRACETAM
     Route: 065
  27. LORAZEPAM [Concomitant]
     Active Substance: LORAZEPAM
  28. MELATONIN [Concomitant]
     Active Substance: MELATONIN
  29. METOCLOPRAMIDE [Concomitant]
     Active Substance: METOCLOPRAMIDE
  30. METOLAZONE [Concomitant]
     Active Substance: METOLAZONE
  31. MIDAZOLAM [Concomitant]
     Active Substance: MIDAZOLAM
  32. MYCAMINE [Concomitant]
     Active Substance: MICAFUNGIN SODIUM
     Dosage: POWDER FOR SOLUTION INTRAVENOUS
  33. NABILONE [Concomitant]
     Active Substance: NABILONE
  34. NOREPINEPHRINE [Concomitant]
     Active Substance: NOREPINEPHRINE
     Dosage: LIQUID INTRAVENOUS
  35. OLANZAPINE [Concomitant]
     Active Substance: OLANZAPINE
  36. PANTOPRAZOLE [Concomitant]
     Active Substance: PANTOPRAZOLE
     Dosage: POWDER FOR SOLUTION INTRAVENOUS
  37. PENTAMIDINE ISETHIONATE [Concomitant]
     Active Substance: PENTAMIDINE ISETHIONATE
     Dosage: INJ, 300MG/VIAL BP
  38. PIPERACILLIN AND TAZOBACTAM [Concomitant]
     Active Substance: PIPERACILLIN SODIUM\TAZOBACTAM SODIUM
  39. POTASSIUM [Concomitant]
     Active Substance: POTASSIUM
     Dosage: SOLUTION INTRAVENOUS
  40. PRAZOSIN [Concomitant]
     Active Substance: PRAZOSIN
  41. RANITIDINE [Concomitant]
     Active Substance: RANITIDINE
  42. SOLIRIS [Concomitant]
     Active Substance: ECULIZUMAB
     Dosage: SOLUTION INTRAVENOUS
  43. SPIRONOLACTONE [Concomitant]
     Active Substance: SPIRONOLACTONE
  44. SULFAMETHOXAZOLE\TRIMETHOPRIM [Concomitant]
     Active Substance: SULFAMETHOXAZOLE\TRIMETHOPRIM
  45. VANCOMYCIN [Concomitant]
     Active Substance: VANCOMYCIN

REACTIONS (9)
  - Acute respiratory failure [Unknown]
  - Cholestasis [Unknown]
  - Diarrhoea [Unknown]
  - Hepatic enzyme increased [Unknown]
  - Nausea [Unknown]
  - Pneumonitis [Unknown]
  - Respiratory distress [Unknown]
  - Venoocclusive liver disease [Unknown]
  - Vomiting [Unknown]
